FAERS Safety Report 19467582 (Version 3)
Quarter: 2021Q3

REPORT INFORMATION
  Report Type: Report from Study
  Country: KR (occurrence: KR)
  Receive Date: 20210628
  Receipt Date: 20210803
  Transmission Date: 20211014
  Serious: Yes (Hospitalization)
  Sender: FDA-Public Use
  Company Number: KR-ROCHE-2849544

PATIENT
  Age: 65 Year
  Sex: Male
  Weight: 72.9 kg

DRUGS (28)
  1. DICHLOZID [Concomitant]
     Indication: HYPERTENSION
     Route: 048
     Dates: start: 2010
  2. BEARSE [Concomitant]
     Active Substance: DIMETHICONE\PANCRELIPASE\URSODIOL
     Indication: GASTRITIS
     Route: 048
     Dates: start: 20210202
  3. ETOPOSIDE. [Suspect]
     Active Substance: ETOPOSIDE
     Indication: SMALL CELL LUNG CANCER EXTENSIVE STAGE
     Dosage: DOSE LAST STUDY DRUG ADMIN PRIOR AE/SAE: 193 MG?START DATE OF MOST RECENT DOSE OF STUDY DRUG PRIOR T
     Route: 042
     Dates: start: 20201229
  4. FEBURIC [Concomitant]
     Active Substance: FEBUXOSTAT
     Indication: GOUT
     Route: 048
  5. COLCHICINE. [Concomitant]
     Active Substance: COLCHICINE
     Route: 048
     Dates: start: 20210601
  6. COLCHICINE. [Concomitant]
     Active Substance: COLCHICINE
     Route: 048
     Dates: start: 20210617, end: 20210618
  7. URININ [Concomitant]
     Indication: GOUT
     Route: 048
     Dates: start: 1998
  8. NOREPINEPHRINE. [Concomitant]
     Active Substance: NOREPINEPHRINE
     Route: 042
     Dates: start: 20210613, end: 20210614
  9. FUROSEMIDE. [Concomitant]
     Active Substance: FUROSEMIDE
     Route: 042
     Dates: start: 20210615, end: 20210615
  10. COLCHICINE. [Concomitant]
     Active Substance: COLCHICINE
     Route: 048
     Dates: start: 20210619
  11. INDOMETA [Concomitant]
     Indication: GOUT
     Route: 048
     Dates: start: 1998
  12. MEGESTROL [Concomitant]
     Active Substance: MEGESTROL
     Indication: DECREASED APPETITE
     Route: 048
     Dates: start: 20210216
  13. ATEZOLIZUMAB. [Suspect]
     Active Substance: ATEZOLIZUMAB
     Indication: SMALL CELL LUNG CANCER EXTENSIVE STAGE
     Dosage: START DATE OF MOST RECENT DOSE OF STUDY DRUG PRIOR TO AE/SAE: 01/JUN/2021?DOSE LAST STUDY DRUG ADMIN
     Route: 041
     Dates: start: 20201229
  14. PRINA [Concomitant]
     Indication: GOUT
     Route: 048
     Dates: start: 1998
  15. RAMOSETRON HCL [Concomitant]
     Active Substance: RAMOSETRON HYDROCHLORIDE
     Route: 042
     Dates: start: 20201229, end: 20210625
  16. RAMOSETRON HCL [Concomitant]
     Active Substance: RAMOSETRON HYDROCHLORIDE
     Route: 048
     Dates: start: 20201229
  17. BLINDED TIRAGOLUMAB [Suspect]
     Active Substance: TIRAGOLUMAB
     Indication: SMALL CELL LUNG CANCER EXTENSIVE STAGE
     Dosage: START DATE OF MOST RECENT DOSE OF STUDY DRUG PRIOR TO AE/SAE: 01/JUN/2021
     Route: 042
     Dates: start: 20201229, end: 20210625
  18. COLCHICINE. [Concomitant]
     Active Substance: COLCHICINE
     Indication: GOUT
     Route: 048
     Dates: start: 20210511, end: 20210531
  19. COLCHICINE. [Concomitant]
     Active Substance: COLCHICINE
     Route: 048
     Dates: start: 20210617, end: 20210617
  20. FAMOTIDINE. [Concomitant]
     Active Substance: FAMOTIDINE
     Indication: GASTRITIS
     Route: 048
     Dates: start: 20210219
  21. OSARTAN [Concomitant]
     Active Substance: LOSARTAN POTASSIUM
     Indication: HYPERTENSION
     Route: 048
     Dates: start: 2010
  22. SOLONDO [Concomitant]
     Active Substance: PREDNISOLONE
     Indication: GOUT
     Route: 048
     Dates: start: 1998
  23. ITOPRIDE [Concomitant]
     Active Substance: ITOPRIDE
     Indication: GASTRITIS
     Route: 048
     Dates: start: 20210202
  24. CARBOPLATIN. [Suspect]
     Active Substance: CARBOPLATIN
     Indication: SMALL CELL LUNG CANCER EXTENSIVE STAGE
     Dosage: DOSE LAST STUDY DRUG ADMIN PRIOR AE/SAE: 468.7 MG?START DATE OF MOST RECENT DOSE OF STUDY DRUG PRIOR
     Route: 042
     Dates: start: 20201229
  25. COLCHICINE. [Concomitant]
     Active Substance: COLCHICINE
     Dosage: 0.5 TABLET
     Route: 048
     Dates: start: 20210616, end: 20210616
  26. COLCHICINE. [Concomitant]
     Active Substance: COLCHICINE
     Route: 048
     Dates: start: 1998
  27. CHLORHEXIDIN [Concomitant]
     Active Substance: CHLORHEXIDINE
     Route: 061
     Dates: start: 20210126
  28. ACTH [Concomitant]
     Active Substance: CORTICOTROPIN
     Route: 042
     Dates: start: 20210614, end: 20210614

REACTIONS (1)
  - Diabetes mellitus [Not Recovered/Not Resolved]

NARRATIVE: CASE EVENT DATE: 20210613
